FAERS Safety Report 12890791 (Version 1)
Quarter: 2016Q4

REPORT INFORMATION
  Report Type: Spontaneous
  Country: US (occurrence: US)
  Receive Date: 20161025
  Receipt Date: 20161025
  Transmission Date: 20170207
  Serious: No
  Sender: FDA-Public Use
  Company Number: None

PATIENT
  Age: 64 Year
  Sex: Female

DRUGS (1)
  1. TEMOZOLOMIDE 100MG SANDOZ INC. A NOVARTIS COMPANY [Suspect]
     Active Substance: TEMOZOLOMIDE
     Indication: BRAIN NEOPLASM MALIGNANT
     Dosage: 300MG DAILY FOR 5 CONSECUTIV ORALLY
     Route: 048
     Dates: start: 20160211

REACTIONS (3)
  - Fatigue [None]
  - Amnesia [None]
  - Visual impairment [None]
